FAERS Safety Report 24464097 (Version 1)
Quarter: 2024Q4

REPORT INFORMATION
  Report Type: Report from Study
  Country: US (occurrence: US)
  Receive Date: 20241018
  Receipt Date: 20241018
  Transmission Date: 20250115
  Serious: No
  Sender: ROCHE
  Company Number: US-ROCHE-3500769

PATIENT
  Age: 28 Year
  Sex: Female
  Weight: 59.87 kg

DRUGS (7)
  1. XOLAIR [Suspect]
     Active Substance: OMALIZUMAB
     Indication: Idiopathic urticaria
     Dosage: EVERY 4 WEEKS FOR 28 DAYS, LAST DATE OF TREATMENT: 28/DEC/2023, 30 DAYS SUPPLY, STRENGTH: 150MG/ML
     Route: 058
     Dates: start: 20221110
  2. XOLAIR [Suspect]
     Active Substance: OMALIZUMAB
     Indication: Urticaria
  3. ALLEGRA [Concomitant]
     Active Substance: FEXOFENADINE HYDROCHLORIDE
  4. CIMETADINE [Concomitant]
  5. CLARITIN [Concomitant]
     Active Substance: LORATADINE
  6. EPINEPHRINE [Concomitant]
     Active Substance: EPINEPHRINE
  7. IBUPROFEN [Concomitant]
     Active Substance: IBUPROFEN

REACTIONS (9)
  - COVID-19 [Unknown]
  - Gastrooesophageal reflux disease [Unknown]
  - Asthma [Unknown]
  - Mechanical urticaria [Unknown]
  - Eczema [Unknown]
  - Hepatic enzyme increased [Unknown]
  - Raynaud^s phenomenon [Unknown]
  - Seasonal allergy [Unknown]
  - Urinary tract infection [Unknown]

NARRATIVE: CASE EVENT DATE: 20221110
